FAERS Safety Report 17730253 (Version 4)
Quarter: 2020Q3

REPORT INFORMATION
  Report Type: Spontaneous
  Country: US (occurrence: US)
  Receive Date: 20200430
  Receipt Date: 20200916
  Transmission Date: 20201102
  Serious: No
  Sender: FDA-Public Use
  Company Number: US-BLUEPRINT MEDICINES CORPORATION-SP-US-2020-000284

PATIENT
  Age: 34 Year
  Sex: Female

DRUGS (3)
  1. AYVAKIT [Suspect]
     Active Substance: AVAPRITINIB
     Route: 048
     Dates: start: 20200226
  2. AYVAKIT [Suspect]
     Active Substance: AVAPRITINIB
     Indication: MASTOCYTIC LEUKAEMIA
     Route: 048
     Dates: start: 20200226
  3. AYVAKIT [Suspect]
     Active Substance: AVAPRITINIB
     Route: 048
     Dates: start: 20200227

REACTIONS (13)
  - Pruritus [Unknown]
  - Headache [Unknown]
  - Off label use [Not Recovered/Not Resolved]
  - Oedema [Unknown]
  - Decreased appetite [Unknown]
  - Taste disorder [Unknown]
  - Drug intolerance [Unknown]
  - Diarrhoea [Unknown]
  - Swelling face [Unknown]
  - Fatigue [Unknown]
  - Emergency care [Unknown]
  - Hair colour changes [Unknown]
  - Eye swelling [Unknown]

NARRATIVE: CASE EVENT DATE: 20200226
